FAERS Safety Report 7758855-9 (Version None)
Quarter: 2011Q3

REPORT INFORMATION
  Report Type: 
  Country: None (occurrence: None)
  Receive Date: 20110919
  Receipt Date: 20110906
  Transmission Date: 20111222
  Serious: Yes (Life-Threatening)
  Sender: FDA-Public Use
  Company Number: JP-NOVOPROD-315589

PATIENT
  Age: 56 Year
  Sex: Male
  Weight: 57 kg

DRUGS (11)
  1. BISOPROLOL FUMARATE [Concomitant]
     Dosage: 2.5 MG, UNK
     Route: 048
     Dates: start: 20100907
  2. VICTOZA [Suspect]
     Dosage: 0.6 MG, UNK
     Dates: start: 20100929, end: 20101006
  3. ASPIRIN [Concomitant]
     Dosage: 200 MG, UNK
     Dates: start: 20100901
  4. LIVALO [Concomitant]
     Dosage: 2 MG, UNK
     Route: 048
  5. PLAVIX [Concomitant]
     Dosage: 45 MG, UNK
     Dates: start: 20100901
  6. LOXONIN [Concomitant]
     Dosage: 180 MG, UNK
     Route: 048
     Dates: start: 20100901
  7. AMARYL [Concomitant]
     Dosage: 0.5 MG, QD
  8. VICTOZA [Suspect]
     Indication: TYPE 2 DIABETES MELLITUS
     Dosage: 0.3 MG, QD
     Route: 058
     Dates: start: 20100908
  9. RABEPRAZOLE SODIUM [Concomitant]
     Dosage: 10 MG, UNK
     Route: 048
     Dates: start: 20100901
  10. SIGMART [Concomitant]
     Dosage: 15 MG, QD
     Route: 048
     Dates: start: 20100908
  11. PAXIL [Concomitant]
     Dosage: 20 MG, UNK
     Route: 048
     Dates: start: 20100911

REACTIONS (4)
  - HICCUPS [None]
  - BLOOD GLUCOSE INCREASED [None]
  - NAUSEA [None]
  - CONSTIPATION [None]
